FAERS Safety Report 16475391 (Version 2)
Quarter: 2019Q3

REPORT INFORMATION
  Report Type: Spontaneous
  Country: JP (occurrence: JP)
  Receive Date: 20190625
  Receipt Date: 20190719
  Transmission Date: 20191004
  Serious: Yes (Other)
  Sender: FDA-Public Use
  Company Number: PHJP2019JP007372

PATIENT
  Age: 62 Year
  Sex: Female

DRUGS (3)
  1. AZOPT [Suspect]
     Active Substance: BRINZOLAMIDE
     Indication: NORMAL TENSION GLAUCOMA
     Dosage: 0.05 MG, UNK
     Route: 047
     Dates: start: 20161213, end: 20181211
  2. TAPROS [Concomitant]
     Indication: NORMAL TENSION GLAUCOMA
     Dosage: 0.05 ML, UNK
     Route: 047
     Dates: start: 200901
  3. TAPROS [Concomitant]
     Dosage: 0.05 ML, UNK
     Route: 047
     Dates: start: 201312

REACTIONS (4)
  - Optic disc haemorrhage [Not Recovered/Not Resolved]
  - Glaucoma [Unknown]
  - Retinal disorder [Not Recovered/Not Resolved]
  - Visual field defect [Recovering/Resolving]

NARRATIVE: CASE EVENT DATE: 20180710
